FAERS Safety Report 15823776 (Version 1)
Quarter: 2019Q1

REPORT INFORMATION
  Report Type: Spontaneous
  Country: US (occurrence: US)
  Receive Date: 20190114
  Receipt Date: 20190114
  Transmission Date: 20190417
  Serious: No
  Sender: FDA-Public Use
  Company Number: US-BAUSCH-BL-2019-000275

PATIENT
  Age: 75 Year
  Sex: Male

DRUGS (2)
  1. LOTEMAX [Suspect]
     Active Substance: LOTEPREDNOL ETABONATE
     Indication: POST PROCEDURAL INFLAMMATION
     Route: 047
     Dates: start: 201812, end: 20190102
  2. LOTEMAX [Suspect]
     Active Substance: LOTEPREDNOL ETABONATE
     Indication: POST PROCEDURAL INFLAMMATION
     Dosage: 1 DROP IN THE AFFECTED EYE AT DINNER AND THEN AT BED TIME
     Route: 047
     Dates: start: 20190102, end: 20190102

REACTIONS (2)
  - Ocular discomfort [Unknown]
  - Incorrect product formulation administered [Recovered/Resolved]

NARRATIVE: CASE EVENT DATE: 201812
